FAERS Safety Report 23004920 (Version 2)
Quarter: 2023Q4

REPORT INFORMATION
  Report Type: Report from Study
  Country: NL (occurrence: NL)
  Receive Date: 20230929
  Receipt Date: 20231209
  Transmission Date: 20240109
  Serious: Yes (Life-Threatening, Other)
  Sender: FDA-Public Use
  Company Number: NL-CELLTRION INC.-2023NL015370

PATIENT

DRUGS (4)
  1. BEVACIZUMAB [Suspect]
     Active Substance: BEVACIZUMAB
     Indication: Drug resistance
     Dosage: CUMULATIVE DOSE WAS 1300 MG FOR 1 CYCLE. ON 20/DEC/2022, LAST DOSE OF BEVACIZUMAB WAS ADMINISTERED.
     Route: 042
     Dates: start: 20221220, end: 20221220
  2. ATEZOLIZUMAB [Suspect]
     Active Substance: ATEZOLIZUMAB
     Indication: Drug resistance
     Dosage: CUMULATIVE DOSE WAS 2400 MG FOR 2 CYCLES. ON 16/JAN/2023, LAST DOSE OF ATEZOLIZUMAB WAS ADMINISTERED
     Route: 042
     Dates: start: 20221220, end: 20230116
  3. CARBOPLATIN [Suspect]
     Active Substance: CARBOPLATIN
     Indication: Drug resistance
     Dosage: CUMULATIVE DOSE WAS 870 MG FOR 1 CYCLE. ON 20/DEC/2022, LAST DOSE OF CARBOPLATIN WAS ADMINISTERED.
     Route: 042
     Dates: start: 20221220, end: 20221220
  4. PACLITAXEL [Suspect]
     Active Substance: PACLITAXEL
     Indication: Drug resistance
     Dosage: CUMULATIVE DOSE WAS 438 MG FOR 1 CYCLE. ON 20/DEC/2022, LAST DOSE OF PACLITAXEL WAS ADMINISTERED.
     Route: 042
     Dates: start: 20221220, end: 20221220

REACTIONS (2)
  - Cerebral infarction [Recovered/Resolved with Sequelae]
  - Intentional product use issue [Unknown]

NARRATIVE: CASE EVENT DATE: 20230114
